FAERS Safety Report 15693706 (Version 1)
Quarter: 2018Q4

REPORT INFORMATION
  Report Type: Spontaneous
  Country: US (occurrence: US)
  Receive Date: 20181206
  Receipt Date: 20181206
  Transmission Date: 20190205
  Serious: No
  Sender: FDA-Public Use
  Company Number: US-TEVA-2018-US-985524

PATIENT
  Age: 24 Year
  Sex: Female

DRUGS (1)
  1. MEDROXYPROGESTERONE ACETATE. [Suspect]
     Active Substance: MEDROXYPROGESTERONE ACETATE
     Indication: CONTRACEPTION
     Dosage: INJECTABLE SUSPENSION?ABOUT 2 WEEKS AGO
     Route: 065
     Dates: start: 2018

REACTIONS (2)
  - Product quality issue [Unknown]
  - Arthralgia [Unknown]
